FAERS Safety Report 11609691 (Version 3)
Quarter: 2015Q4

REPORT INFORMATION
  Report Type: Spontaneous
  Country: DE (occurrence: DE)
  Receive Date: 20151007
  Receipt Date: 20151208
  Transmission Date: 20160304
  Serious: Yes (Life-Threatening, Hospitalization, Other)
  Sender: FDA-Public Use
  Company Number: PHHY2015DE121030

PATIENT
  Age: 46 Year
  Sex: Male
  Weight: 87 kg

DRUGS (1)
  1. COSENTYX [Suspect]
     Active Substance: SECUKINUMAB
     Indication: PSORIASIS
     Dosage: 300 MG, UNK
     Route: 058
     Dates: start: 20150617

REACTIONS (6)
  - Back pain [Unknown]
  - Gallbladder necrosis [Recovered/Resolved with Sequelae]
  - Short-bowel syndrome [Unknown]
  - Gastrointestinal necrosis [Recovered/Resolved with Sequelae]
  - Arterial occlusive disease [Recovered/Resolved with Sequelae]
  - Appendicitis [Unknown]

NARRATIVE: CASE EVENT DATE: 2015
